FAERS Safety Report 17568038 (Version 1)
Quarter: 2020Q1

REPORT INFORMATION
  Report Type: Spontaneous
  Country: SE (occurrence: SE)
  Receive Date: 20200321
  Receipt Date: 20200321
  Transmission Date: 20200409
  Serious: Yes (Hospitalization, Disabling)
  Sender: FDA-Public Use
  Company Number: SE-ACCORD-176539

PATIENT
  Age: 44 Year
  Sex: Male
  Weight: 65 kg

DRUGS (8)
  1. FOLIC ACID. [Concomitant]
     Active Substance: FOLIC ACID
     Dosage: ANHYDROUS FOLIC ACID,
     Dates: start: 1990, end: 20190924
  2. METHOTREXATE. [Suspect]
     Active Substance: METHOTREXATE
     Indication: RHEUMATOID ARTHRITIS
     Dosage: 6 ONCE PER WEEK
     Dates: start: 1990, end: 20190924
  3. PANODIL [Concomitant]
     Active Substance: ACETAMINOPHEN
     Dates: start: 1990
  4. CELECOXIB. [Concomitant]
     Active Substance: CELECOXIB
     Dates: start: 2000
  5. HYDROCHLOROTHIAZIDE/LOSARTAN POTASSIUM [Concomitant]
     Active Substance: HYDROCHLOROTHIAZIDE\LOSARTAN POTASSIUM
     Dosage: 100MG/25MG
     Dates: start: 2010
  6. OMEPRAZOLE. [Concomitant]
     Active Substance: OMEPRAZOLE
     Dates: start: 1990
  7. REMICADE [Concomitant]
     Active Substance: INFLIXIMAB
     Dates: start: 1990, end: 20190723
  8. ATORVASTATIN [Concomitant]
     Active Substance: ATORVASTATIN
     Dates: start: 20190319

REACTIONS (10)
  - Hallucination [Recovered/Resolved with Sequelae]
  - Fatigue [Recovered/Resolved with Sequelae]
  - Vomiting [Recovered/Resolved with Sequelae]
  - Confusional state [Recovered/Resolved with Sequelae]
  - Abdominal distension [Recovered/Resolved with Sequelae]
  - Headache [Recovered/Resolved with Sequelae]
  - Amnesia [Recovered/Resolved with Sequelae]
  - Nausea [Recovered/Resolved with Sequelae]
  - Abdominal discomfort [Recovered/Resolved with Sequelae]
  - Speech disorder [Recovered/Resolved with Sequelae]

NARRATIVE: CASE EVENT DATE: 1990
